FAERS Safety Report 20931490 (Version 1)
Quarter: 2022Q2

REPORT INFORMATION
  Report Type: Spontaneous
  Country: BR (occurrence: None)
  Receive Date: 20220608
  Receipt Date: 20220608
  Transmission Date: 20220721
  Serious: Yes (Other)
  Sender: FDA-Public Use
  Company Number: BR-ROCHE-3108787

PATIENT
  Age: 73 Year
  Sex: Male
  Weight: 90 kg

DRUGS (1)
  1. MABTHERA [Suspect]
     Active Substance: RITUXIMAB
     Indication: Neoplasm
     Route: 065
     Dates: start: 20201225, end: 20201226

REACTIONS (4)
  - Tremor [Recovered/Resolved]
  - Hypothermia [Unknown]
  - Hypertension [Unknown]
  - Tachycardia [Unknown]

NARRATIVE: CASE EVENT DATE: 20201225
